FAERS Safety Report 7545388-8 (Version None)
Quarter: 2011Q2

REPORT INFORMATION
  Report Type: 
  Country: None (occurrence: None)
  Receive Date: 20110524
  Receipt Date: 20110215
  Transmission Date: 20111010
  Serious: No
  Sender: FDA-Public Use
  Company Number: 027656

PATIENT
  Sex: Female

DRUGS (7)
  1. METHOTREXATE [Concomitant]
  2. M.V.I. [Concomitant]
  3. CALCIUM CARBONATE [Concomitant]
  4. VITAMINA D TRES BERENGUER [Concomitant]
  5. FOLIC ACID [Concomitant]
  6. CIMZIA [Suspect]
     Indication: CROHN'S DISEASE
     Dosage: (400 MG 1X/MONTH SUBCUTANEOUS)
     Route: 058
     Dates: start: 20101110
  7. NEXIUM [Concomitant]

REACTIONS (1)
  - URTICARIA [None]
